FAERS Safety Report 23442821 (Version 1)
Quarter: 2024Q1

REPORT INFORMATION
  Report Type: Spontaneous
  Country: US (occurrence: None)
  Receive Date: 20240124
  Receipt Date: 20240124
  Transmission Date: 20240409
  Serious: Yes (Hospitalization)
  Sender: FDA-Public Use
  Company Number: None

PATIENT
  Age: 90 Year
  Sex: Male

DRUGS (1)
  1. VYNDAMAX [Suspect]
     Active Substance: TAFAMIDIS
     Indication: Hyperlipidaemia
     Dosage: 61MG 1 TIME A DAY PO?
     Route: 048
     Dates: start: 202302

REACTIONS (2)
  - Cerebrovascular accident [None]
  - Language disorder [None]

NARRATIVE: CASE EVENT DATE: 20240113
